FAERS Safety Report 14671337 (Version 2)
Quarter: 2018Q1

REPORT INFORMATION
  Report Type: Spontaneous
  Country: JP (occurrence: JP)
  Receive Date: 20180323
  Receipt Date: 20180329
  Transmission Date: 20180509
  Serious: Yes (Other)
  Sender: FDA-Public Use
  Company Number: JP-TAKEDA-2018TJP007740

PATIENT
  Age: 91 Year
  Sex: Female

DRUGS (3)
  1. TAKEPRON CAPSULES 15 [Suspect]
     Active Substance: LANSOPRAZOLE
     Indication: ULCER
     Dosage: UNK
     Route: 048
  2. MAGNESIUM OXIDE. [Concomitant]
     Active Substance: MAGNESIUM OXIDE
     Dosage: UNK
     Route: 048
  3. BAYASPIRIN [Concomitant]
     Active Substance: ASPIRIN
     Dosage: UNK
     Route: 048

REACTIONS (3)
  - Oesophageal carcinoma [Unknown]
  - Condition aggravated [Unknown]
  - Oesophageal stenosis [Unknown]
